FAERS Safety Report 7670094-9 (Version None)
Quarter: 2011Q3

REPORT INFORMATION
  Report Type: 
  Country: None (occurrence: None)
  Receive Date: 20110808
  Receipt Date: 20110802
  Transmission Date: 20111222
  Serious: Yes (Death, Life-Threatening)
  Sender: FDA-Public Use
  Company Number: DE-ASTRAZENECA-2011SE46220

PATIENT
  Age: 83 Year
  Sex: Male

DRUGS (7)
  1. ASPIRIN [Concomitant]
     Route: 048
  2. SEROQUEL [Suspect]
     Route: 048
     Dates: start: 20041201
  3. TAMSULOSIN HCL [Concomitant]
     Route: 048
  4. ROCEPHIN [Concomitant]
     Route: 042
     Dates: start: 20050115
  5. DOMINAL [Suspect]
     Route: 048
     Dates: start: 20041201
  6. ACC 200 [Concomitant]
     Route: 048
     Dates: start: 20050114
  7. RINGERLOESUNG [Concomitant]
     Route: 042
     Dates: start: 20050115

REACTIONS (1)
  - PNEUMONIA [None]
